FAERS Safety Report 8307039-4 (Version None)
Quarter: 2012Q2

REPORT INFORMATION
  Report Type: 
  Country: None (occurrence: None)
  Receive Date: 20120424
  Receipt Date: 20120416
  Transmission Date: 20120825
  Serious: Yes (Other)
  Sender: FDA-Public Use
  Company Number: PHEH2011US04574

PATIENT
  Sex: Female
  Weight: 81.633 kg

DRUGS (5)
  1. BENADRYL [Concomitant]
     Dosage: 25 MG, QHS
     Route: 048
  2. PROZAC [Concomitant]
     Dosage: 1 DF, QD, 40MG /20 MG
     Route: 048
  3. GILENYA [Suspect]
     Indication: MULTIPLE SCLEROSIS RELAPSE
     Dosage: 0.5 MG, QD
     Route: 048
     Dates: start: 20110801
  4. PRAVASTATIN [Concomitant]
     Dosage: 40 MG, QD
     Route: 048
  5. FIBERCON (POLYCARBOPHIL) [Concomitant]
     Dosage: 10 MG, QD
     Route: 048

REACTIONS (7)
  - OPTIC NEURITIS [None]
  - COGNITIVE DISORDER [None]
  - HEAD INJURY [None]
  - DYSPHAGIA [None]
  - VISUAL ACUITY REDUCED [None]
  - DYSARTHRIA [None]
  - LOSS OF CONTROL OF LEGS [None]
